FAERS Safety Report 13660457 (Version 1)
Quarter: 2017Q2

REPORT INFORMATION
  Report Type: Spontaneous
  Country: US (occurrence: US)
  Receive Date: 20170615
  Receipt Date: 20170615
  Transmission Date: 20170830
  Serious: Yes (Disabling, Other)
  Sender: FDA-Public Use
  Company Number: None

PATIENT
  Age: 20 Year
  Sex: Female
  Weight: 56.7 kg

DRUGS (2)
  1. BUPROPION XL 300 MG TER [Suspect]
     Active Substance: BUPROPION
     Indication: MAJOR DEPRESSION
     Dosage: ?          QUANTITY:1 TABLET(S);?
     Route: 048
     Dates: start: 20170614, end: 20170615
  2. LO LOESTRINE FE [Concomitant]

REACTIONS (9)
  - Product substitution issue [None]
  - Headache [None]
  - Heart rate increased [None]
  - Tremor [None]
  - Disturbance in attention [None]
  - Cold sweat [None]
  - Syncope [None]
  - Nausea [None]
  - Blood pressure increased [None]

NARRATIVE: CASE EVENT DATE: 20170615
